FAERS Safety Report 13799793 (Version 1)
Quarter: 2017Q3

REPORT INFORMATION
  Report Type: Spontaneous
  Country: US (occurrence: US)
  Receive Date: 20170727
  Receipt Date: 20170727
  Transmission Date: 20171127
  Serious: Yes (Disabling)
  Sender: FDA-Public Use
  Company Number: None

PATIENT
  Age: 27 Year
  Sex: Male
  Weight: 73.35 kg

DRUGS (11)
  1. ASHWAGANDHA [Concomitant]
     Active Substance: HERBALS
  2. VITAMIN D3 [Concomitant]
     Active Substance: CHOLECALCIFEROL
  3. FLAXSEED [Concomitant]
     Active Substance: FLAX SEED
  4. ZANTAC [Concomitant]
     Active Substance: RANITIDINE HYDROCHLORIDE
  5. TIMOLOL. [Concomitant]
     Active Substance: TIMOLOL
  6. 5-HTP [Concomitant]
     Active Substance: OXITRIPTAN
  7. TRIBULUS TERRESTRIS [Concomitant]
     Active Substance: HERBALS\TRIBULUS TERRESTRIS
  8. LORAZEPAM. [Concomitant]
     Active Substance: LORAZEPAM
  9. PROSCAR [Suspect]
     Active Substance: FINASTERIDE
     Indication: ALOPECIA
     Dosage: ?          QUANTITY:30 TABLET(S);?
     Route: 048
  10. LATANAPROST [Concomitant]
     Active Substance: LATANOPROST
  11. L-TYROSINE [Concomitant]

REACTIONS (7)
  - Anxiety [None]
  - Erectile dysfunction [None]
  - Product quality issue [None]
  - Diarrhoea [None]
  - Emotional disorder [None]
  - Exercise tolerance decreased [None]
  - Sleep disorder [None]

NARRATIVE: CASE EVENT DATE: 20160904
